FAERS Safety Report 8773331 (Version 3)
Quarter: 2013Q1

REPORT INFORMATION
  Report Type: Spontaneous
  Country: DE (occurrence: DE)
  Receive Date: 20120907
  Receipt Date: 20130311
  Transmission Date: 20140127
  Serious: Yes (Life-Threatening, Hospitalization)
  Sender: FDA-Public Use
  Company Number: DE-ROCHE-1113306

PATIENT
  Age: 39 None
  Sex: Female
  Weight: 79 kg

DRUGS (6)
  1. HERCEPTIN [Suspect]
     Indication: PAGET^S DISEASE OF NIPPLE
     Route: 042
     Dates: start: 201110, end: 20120209
  2. HERCEPTIN [Suspect]
     Route: 042
     Dates: start: 201110, end: 20120209
  3. CYCLOPHOSPHAMIDE [Suspect]
     Indication: PAGET^S DISEASE OF NIPPLE
     Route: 042
     Dates: start: 201112, end: 20120209
  4. ABRAXANE [Suspect]
     Indication: PAGET^S DISEASE OF NIPPLE
     Route: 042
     Dates: start: 201110, end: 201112
  5. FLUOROURACIL [Concomitant]
  6. EPIRUBICIN [Concomitant]

REACTIONS (4)
  - Pulmonary toxicity [Recovered/Resolved]
  - Cough [Recovered/Resolved]
  - Dyspnoea [Recovered/Resolved]
  - Pyrexia [Recovered/Resolved]
